FAERS Safety Report 19036693 (Version 1)
Quarter: 2021Q1

REPORT INFORMATION
  Report Type: Spontaneous
  Country: ES (occurrence: ES)
  Receive Date: 20210322
  Receipt Date: 20210322
  Transmission Date: 20210420
  Serious: Yes (Hospitalization)
  Sender: FDA-Public Use
  Company Number: ES-TEVA-2021-ES-1891698

PATIENT
  Age: 84 Year
  Sex: Female

DRUGS (3)
  1. FENTANYL TRANSDERMAL SYSTEM [Suspect]
     Active Substance: FENTANYL
     Indication: VASCULAR PAIN
     Dosage: UNIT DOSE :300 MCG ,3 PATCHES / 72H
     Route: 062
     Dates: start: 20201011, end: 20201214
  2. FENTANYL TRANSDERMAL SYSTEM [Suspect]
     Active Substance: FENTANYL
     Dosage: UNIT DOSE 200 MCG
     Route: 062
     Dates: start: 20200104, end: 20201010
  3. FENTANYL TRANSDERMAL SYSTEM [Suspect]
     Active Substance: FENTANYL
     Dosage: UNIT DOSE 100 MCG ,1 PATCH / 72H
     Route: 062
     Dates: start: 20190417, end: 20200103

REACTIONS (2)
  - Hip fracture [Recovered/Resolved with Sequelae]
  - Fall [Recovered/Resolved with Sequelae]

NARRATIVE: CASE EVENT DATE: 20201211
